FAERS Safety Report 13977795 (Version 1)
Quarter: 2017Q3

REPORT INFORMATION
  Report Type: Spontaneous
  Country: US (occurrence: US)
  Receive Date: 20170915
  Receipt Date: 20170915
  Transmission Date: 20171128
  Serious: Yes (Death)
  Sender: FDA-Public Use
  Company Number: None

PATIENT
  Age: 22 Year
  Sex: Female

DRUGS (8)
  1. MORPHINE SULFATE CR [Concomitant]
     Active Substance: MORPHINE SULFATE
  2. CLONAZEPAM. [Concomitant]
     Active Substance: CLONAZEPAM
  3. CAPECITABINE. [Suspect]
     Active Substance: CAPECITABINE
     Indication: COR PULMONALE ACUTE
     Route: 048
  4. LOVENOX [Concomitant]
     Active Substance: ENOXAPARIN SODIUM
  5. ZOFRAN [Concomitant]
     Active Substance: ONDANSETRON HYDROCHLORIDE
  6. HYDROCORTISONE. [Concomitant]
     Active Substance: HYDROCORTISONE
  7. METHADONE HCL [Concomitant]
     Active Substance: METHADONE HYDROCHLORIDE
  8. CAPECITABINE. [Suspect]
     Active Substance: CAPECITABINE
     Indication: PULMONARY EMBOLISM
     Route: 048

REACTIONS (1)
  - Death [None]
